FAERS Safety Report 20798940 (Version 1)
Quarter: 2022Q2

REPORT INFORMATION
  Report Type: Report from Study
  Country: US (occurrence: US)
  Receive Date: 20220507
  Receipt Date: 20220507
  Transmission Date: 20220721
  Serious: No
  Sender: FDA-Public Use
  Company Number: US-NOVARTISTESTPH-NVSC2022US039363

PATIENT
  Sex: Male
  Weight: 108.18 kg

DRUGS (2)
  1. TASIGNA [Suspect]
     Active Substance: NILOTINIB
     Indication: Philadelphia chromosome positive
     Dosage: 150 MG, BID
     Route: 048
     Dates: start: 2016
  2. TASIGNA [Suspect]
     Active Substance: NILOTINIB
     Indication: Chronic myeloid leukaemia

REACTIONS (3)
  - No adverse event [Unknown]
  - Foot fracture [Unknown]
  - Nasopharyngitis [Unknown]
